FAERS Safety Report 5103200-0 (Version None)
Quarter: 2006Q3

REPORT INFORMATION
  Report Type: 
  Country: None (occurrence: None)
  Receive Date: 20060912
  Receipt Date: 20060912
  Transmission Date: 20061208
  Serious: Yes (Life-Threatening)
  Sender: FDA-Public Use
  Company Number: None

PATIENT
  Age: 54 Year
  Sex: Male
  Weight: 99.7 kg

DRUGS (11)
  1. EPTIFIBATIDE [Suspect]
     Indication: CATHETERISATION CARDIAC
     Dosage: 180 MCG/KG BOLUS, 2MCG/KG/MIN INFUSION IV
     Route: 042
     Dates: start: 20060821
  2. EPTIFIBATIDE [Suspect]
     Indication: STENT PLACEMENT
     Dosage: 180 MCG/KG BOLUS, 2MCG/KG/MIN INFUSION IV
     Route: 042
     Dates: start: 20060821
  3. . [Concomitant]
  4. . [Concomitant]
  5. . [Concomitant]
  6. . [Concomitant]
  7. . [Concomitant]
  8. . [Concomitant]
  9. . [Concomitant]
  10. . [Concomitant]
  11. . [Concomitant]

REACTIONS (1)
  - THROMBOCYTOPENIA [None]
